FAERS Safety Report 17534221 (Version 1)
Quarter: 2020Q1

REPORT INFORMATION
  Report Type: Spontaneous
  Country: CA (occurrence: CA)
  Receive Date: 20200312
  Receipt Date: 20200312
  Transmission Date: 20200409
  Serious: Yes (Other)
  Sender: FDA-Public Use
  Company Number: CA-MALLINCKRODT-T202001165

PATIENT
  Sex: Male
  Weight: 77 kg

DRUGS (2)
  1. ACDA [Concomitant]
     Indication: ANTICOAGULANT THERAPY
     Route: 065
  2. UVADEX [Suspect]
     Active Substance: METHOXSALEN
     Indication: PRODUCT USED FOR UNKNOWN INDICATION
     Dosage: UNK (EXTRACORPOREAL)
     Route: 050
     Dates: start: 20200304, end: 20200304

REACTIONS (2)
  - Wrong technique in product usage process [Recovered/Resolved]
  - Intravascular gas [Recovered/Resolved]

NARRATIVE: CASE EVENT DATE: 20200304
